FAERS Safety Report 9666248 (Version 2)
Quarter: 2015Q2

REPORT INFORMATION
  Report Type: Spontaneous
  Country: US (occurrence: None)
  Receive Date: 20131031
  Receipt Date: 20150427
  Transmission Date: 20150821
  Serious: Yes (Death)
  Sender: FDA-Public Use
  Company Number: 1713747-2013-99969

PATIENT
  Age: 48 Year
  Sex: Male

DRUGS (4)
  1. LIBERTY TUBING [Concomitant]
  2. DELFLEX [Suspect]
     Active Substance: CALCIUM CHLORIDE\DEXTROSE MONOHYDRATE\MAGNESIUM CHLORIDE\SODIUM CHLORIDE\SODIUM LACTATE
     Indication: CHRONIC KIDNEY DISEASE
     Dosage: PERITONEAL DIALYSIS?
     Dates: start: 20131013
  3. DELFLEX [Suspect]
     Active Substance: CALCIUM CHLORIDE\DEXTROSE MONOHYDRATE\MAGNESIUM CHLORIDE\SODIUM CHLORIDE\SODIUM LACTATE
     Indication: PERITONEAL DIALYSIS
     Dosage: PERITONEAL DIALYSIS?
     Dates: start: 20131013
  4. LIBERTY CYCLER [Concomitant]

REACTIONS (4)
  - Loss of consciousness [None]
  - Unresponsive to stimuli [None]
  - Heat illness [None]
  - Cardio-respiratory arrest [None]

NARRATIVE: CASE EVENT DATE: 20131015
